FAERS Safety Report 9138312 (Version 2)
Quarter: 2013Q3

REPORT INFORMATION
  Report Type: Report from Study
  Country: JP (occurrence: JP)
  Receive Date: 20130305
  Receipt Date: 20130819
  Transmission Date: 20140515
  Serious: Yes (Death)
  Sender: FDA-Public Use
  Company Number: JP-MERCK-1303JPN001315

PATIENT
  Age: 68 Year
  Sex: Male

DRUGS (14)
  1. REFLEX [Suspect]
     Indication: DEPRESSION
     Dosage: 15 MG, QD
     Route: 048
     Dates: start: 20110105, end: 20110110
  2. REFLEX [Suspect]
     Dosage: 30 MG, QD
     Route: 048
     Dates: start: 20110111, end: 20110220
  3. MEILAX [Suspect]
     Indication: DEPRESSION
     Dosage: DAILY DOSE UNKNOWN
     Route: 048
     Dates: start: 20110104, end: 20110220
  4. LENDORMIN [Suspect]
     Indication: DEPRESSION
     Dosage: 0.25 MG, UNK
     Route: 048
     Dates: start: 20110104, end: 20110129
  5. ABILIFY [Suspect]
     Indication: DEPRESSION
     Dosage: 3 MG, UNK
     Route: 048
     Dates: start: 20101227, end: 20110130
  6. DULOXETINE HYDROCHLORIDE [Concomitant]
     Indication: DEPRESSION
     Dosage: 2 DF, QD
     Route: 048
     Dates: start: 20101217, end: 20110117
  7. LOXOPROFEN SODIUM [Concomitant]
     Indication: PROSTATE CANCER
     Dosage: UNK
     Route: 048
     Dates: end: 20110220
  8. MAGNESIUM OXIDE [Concomitant]
     Indication: PROSTATE CANCER
     Dosage: UNK
     Route: 048
     Dates: end: 20110220
  9. FLUTAMIDE [Concomitant]
     Indication: PROSTATE CANCER
     Dosage: UNK
     Route: 048
     Dates: end: 20110220
  10. URSODIOL [Concomitant]
     Indication: PROSTATE CANCER
     Dosage: UNK
     Route: 048
     Dates: end: 20110220
  11. SENNOSIDES [Concomitant]
     Indication: PROSTATE CANCER
     Dosage: UNK
     Route: 048
     Dates: end: 20110220
  12. ALDIOXA [Concomitant]
     Indication: PROSTATE CANCER
     Dosage: UNK
     Route: 048
     Dates: end: 20110220
  13. DEXAMETHASONE [Concomitant]
     Indication: PROSTATE CANCER
     Dosage: UNK
     Dates: end: 20110220
  14. RABEPRAZOLE SODIUM [Concomitant]
     Indication: PROSTATE CANCER
     Dosage: UNK
     Route: 048
     Dates: end: 20110220

REACTIONS (1)
  - Prostate cancer [Fatal]
